FAERS Safety Report 24222061 (Version 2)
Quarter: 2024Q3

REPORT INFORMATION
  Report Type: Spontaneous
  Country: US (occurrence: US)
  Receive Date: 20240819
  Receipt Date: 20240821
  Transmission Date: 20241017
  Serious: Yes (Other)
  Sender: JOHNSON AND JOHNSON
  Company Number: US-JNJFOC-20240822177

PATIENT
  Age: 29 Year
  Sex: Male

DRUGS (1)
  1. POLYSPORIN FIRST AID ANTIBIOTIC [Suspect]
     Active Substance: BACITRACIN\POLYMYXIN B SULFATE
     Indication: Skin laceration
     Dosage: LITTLE DIME SIZE
     Route: 061
     Dates: start: 20240806

REACTIONS (3)
  - Blindness [Not Recovered/Not Resolved]
  - Application site swelling [Not Recovered/Not Resolved]
  - Application site erosion [Not Recovered/Not Resolved]

NARRATIVE: CASE EVENT DATE: 20240807
